FAERS Safety Report 7475300-1 (Version None)
Quarter: 2011Q2

REPORT INFORMATION
  Report Type: 
  Country: None (occurrence: None)
  Receive Date: 20110512
  Receipt Date: 20110428
  Transmission Date: 20111010
  Serious: Yes (Death, Other)
  Sender: FDA-Public Use
  Company Number: JP-BAYER-200914090BYL

PATIENT
  Age: 58 Year
  Sex: Male
  Weight: 62 kg

DRUGS (8)
  1. GASTER D [Concomitant]
     Indication: GASTRITIS
     Dosage: DAILY DOSE 20 MG
     Route: 048
     Dates: start: 20090213, end: 20100102
  2. NEXAVAR [Suspect]
     Dosage: DAILY DOSE 400 MG
     Route: 048
     Dates: start: 20091128, end: 20100102
  3. POLARAMINE [Concomitant]
     Indication: RHINITIS
     Dosage: DAILY DOSE 2 MG
     Route: 048
     Dates: start: 20090213, end: 20100102
  4. NEXAVAR [Suspect]
     Indication: HEPATIC NEOPLASM MALIGNANT
     Dosage: 400 MG, BID
     Route: 048
     Dates: start: 20090919, end: 20091127
  5. OLMESARTAN MEDOXOMIL [Concomitant]
     Indication: HYPERTENSION
     Dosage: DAILY DOSE 10 MG
     Route: 048
     Dates: start: 20090213, end: 20100102
  6. SEISHOKU [Concomitant]
     Indication: CANCER PAIN
     Dosage: DAILY DOSE 40 ML
     Route: 042
     Dates: start: 20100105
  7. PROHEPARUM [Concomitant]
     Indication: HEPATIC CIRRHOSIS
     Dosage: UNK
     Route: 048
     Dates: start: 20090213, end: 20100102
  8. FENTANYL [Concomitant]
     Indication: CANCER PAIN
     Dosage: DAILY DOSE .1 MG
     Route: 042
     Dates: start: 20100105

REACTIONS (4)
  - HEPATIC FAILURE [None]
  - HEPATIC ENCEPHALOPATHY [None]
  - VENTRICULAR FIBRILLATION [None]
  - HYPERTENSION [None]
